FAERS Safety Report 4860924-8 (Version None)
Quarter: 2005Q4

REPORT INFORMATION
  Report Type: 
  Country: None (occurrence: None)
  Receive Date: 20051216
  Receipt Date: 20051207
  Transmission Date: 20060501
  Serious: Yes (Death)
  Sender: FDA-Public Use
  Company Number: 2005-12-0441

PATIENT
  Age: 74 Year
  Sex: Male

DRUGS (12)
  1. PROVENTIL-HFA [Suspect]
     Dosage: 100 MCG ORAL AER INH
     Route: 055
  2. SPIRIVA [Suspect]
     Dosage: 18 MCG QD INHALATION
     Route: 055
  3. AMITRIPTYLINE HCL [Suspect]
     Dosage: 25 MG PM ORAL
     Route: 048
  4. CLARITHROMYCIN CAPSULES [Suspect]
     Dosage: 250 MG BID ORAL
     Route: 048
  5. MENTHOL [Suspect]
     Dosage: VAPORS QID INHALATION
     Route: 055
  6. OXYGEN [Suspect]
  7. ACETAMINOPHEN [Suspect]
     Dosage: 1000 MG QID ORAL
     Route: 048
  8. PREDNISOLONE [Suspect]
     Dosage: 5 MG QD ORAL
     Route: 048
  9. SERETIDE (SALMETEROL XINAFOATE/FLUTICASONE PROPIONAT ORAL AEROSOL [Suspect]
     Dosage: 2 PUFFS BID ORAL AER INH
     Route: 055
  10. SUMATRIPTAN TABLETS [Suspect]
     Dosage: 100 MCG NASAL SPRAY
     Route: 045
  11. VERAPAMIL [Suspect]
     Dosage: 120 MG TID ORAL
     Route: 048
  12. EUCALYPTUS OIL [Suspect]
     Dosage: VAPOR QID INHALATION
     Route: 055

REACTIONS (2)
  - CHRONIC OBSTRUCTIVE PULMONARY DISEASE [None]
  - LOWER RESPIRATORY TRACT INFECTION [None]
